FAERS Safety Report 14476238 (Version 2)
Quarter: 2019Q3

REPORT INFORMATION
  Report Type: Report from Study
  Country: US (occurrence: US)
  Receive Date: 20180201
  Receipt Date: 20190903
  Transmission Date: 20191004
  Serious: No
  Sender: FDA-Public Use
  Company Number: US-SA-2017SA251024

PATIENT
  Age: 68 Year
  Sex: Female
  Weight: 56.7 kg

DRUGS (25)
  1. ALIROCUMAB [Suspect]
     Active Substance: ALIROCUMAB
     Indication: TYPE IIA HYPERLIPIDAEMIA
     Dosage: 75 MG,QOW
     Route: 058
     Dates: start: 20170717, end: 20180126
  2. GABAPENTIN. [Concomitant]
     Active Substance: GABAPENTIN
     Dosage: UNK UNK,PRN
     Route: 065
  3. ADVAIR HFA [Concomitant]
     Active Substance: FLUTICASONE PROPIONATE\SALMETEROL XINAFOATE
     Dosage: 2 DF,BID
     Route: 065
  4. MILK OF MAGNESIA [Concomitant]
     Active Substance: MAGNESIUM HYDROXIDE
     Dosage: UNK UNK,PRN
     Route: 048
  5. ASPIRIN [ACETYLSALICYLIC ACID] [Concomitant]
     Active Substance: ASPIRIN
     Dosage: 81 MG,QD
     Route: 048
  6. DILTIAZEM SANDOZ [Concomitant]
     Active Substance: DILTIAZEM HYDROCHLORIDE
     Dosage: 120 MG,QD
     Route: 048
  7. ANTIVERT [Concomitant]
     Active Substance: MECLIZINE HYDROCHLORIDE
     Dosage: 25 MG,PRN
     Route: 048
  8. COD LIVER OIL;VITAMINS NOS [Concomitant]
     Dosage: UNK UNK,UNK
     Route: 065
  9. ALIROCUMAB [Suspect]
     Active Substance: ALIROCUMAB
     Dosage: 75 MG, QOW
     Route: 058
     Dates: start: 201808
  10. MOMETASONE FUROATE. [Concomitant]
     Active Substance: MOMETASONE FUROATE
     Dosage: 2 DF,QD
     Route: 045
  11. ISORDIL [Concomitant]
     Active Substance: ISOSORBIDE DINITRATE
     Dosage: 10 MG,QD
     Route: 048
  12. ALIROCUMAB [Suspect]
     Active Substance: ALIROCUMAB
     Indication: BLOOD CHOLESTEROL INCREASED
     Dosage: 75 MG,QOW
     Route: 058
     Dates: start: 2018
  13. XANAX [Concomitant]
     Active Substance: ALPRAZOLAM
     Dosage: .5 MG,TID
  14. PLAVIX [Concomitant]
     Active Substance: CLOPIDOGREL BISULFATE
     Dosage: 75 MG,QD
     Route: 048
  15. NEURONTIN [Concomitant]
     Active Substance: GABAPENTIN
     Dosage: 200 MG,PRN
     Route: 048
  16. NITROSTAT [Concomitant]
     Active Substance: NITROGLYCERIN
     Dosage: .4 MG,PRN
     Route: 048
  17. ALIROCUMAB [Suspect]
     Active Substance: ALIROCUMAB
     Dosage: 150 MG, QOW
     Route: 058
     Dates: start: 201802, end: 2018
  18. VENTOLIN [Concomitant]
     Active Substance: ALBUTEROL SULFATE
     Dosage: 2 DF,PRN
     Route: 055
  19. PREMARIN [Concomitant]
     Active Substance: ESTROGENS, CONJUGATED
     Dosage: INSERT 0.5 G INTO THE VAGINA 2 TIMES A WEEK , FOR FIRST 2 WEEKS, CAN TAKE DAILY AT BEDTIME,
     Route: 067
  20. VITAMIN D3 [Concomitant]
     Active Substance: CHOLECALCIFEROL
     Dosage: 5000 DF,UNK
     Route: 048
  21. COENZYME Q10 [Concomitant]
     Active Substance: UBIDECARENONE
     Dosage: 100 MG,QD
     Route: 048
  22. FISH OIL [Concomitant]
     Active Substance: FISH OIL
     Dosage: UNK UNK,UNK
     Route: 048
  23. AMOXIL [Concomitant]
     Active Substance: AMOXICILLIN
     Dosage: 500 MG,TID
     Route: 048
  24. DILTIAZEM. [Concomitant]
     Active Substance: DILTIAZEM
     Indication: PALPITATIONS
     Dosage: 60 MG,PRN
     Route: 048
  25. ALLBEE WITH C [Concomitant]
     Dosage: UNK UNK,QD
     Route: 048

REACTIONS (16)
  - Feeling abnormal [Unknown]
  - Oropharyngeal pain [Not Recovered/Not Resolved]
  - Influenza like illness [Unknown]
  - Product dose omission [Unknown]
  - Blood triglycerides increased [Unknown]
  - Asthenia [Not Recovered/Not Resolved]
  - Viral infection [Not Recovered/Not Resolved]
  - Dysphonia [Not Recovered/Not Resolved]
  - Paraesthesia [Unknown]
  - Low density lipoprotein increased [Not Recovered/Not Resolved]
  - Feeling abnormal [Unknown]
  - Cough [Not Recovered/Not Resolved]
  - Malaise [Unknown]
  - Chest pain [Unknown]
  - Pain [Unknown]
  - Suspected product contamination [Unknown]

NARRATIVE: CASE EVENT DATE: 201707
